FAERS Safety Report 5307292-5 (Version None)
Quarter: 2007Q1

REPORT INFORMATION
  Report Type: 
  Country: None (occurrence: None)
  Receive Date: 20070201
  Receipt Date: 20061205
  Transmission Date: 20070707
  Serious: No
  Sender: FDA-Public Use
  Company Number: 2006PV026468

PATIENT
  Age: 46 Year
  Sex: Male
  Weight: 113.3993 kg

DRUGS (6)
  1. BYETTA [Suspect]
     Indication: DIABETES MELLITUS NON-INSULIN-DEPENDENT
     Dosage: 10 MCG;BID;SC 5 MCG;BID;SC
     Route: 058
     Dates: start: 20060801, end: 20060901
  2. BYETTA [Suspect]
     Indication: DIABETES MELLITUS NON-INSULIN-DEPENDENT
     Dosage: 10 MCG;BID;SC 5 MCG;BID;SC
     Route: 058
     Dates: start: 20060901
  3. METFORMIN HCL [Concomitant]
  4. JANUVIA [Concomitant]
  5. AVANDAMET [Concomitant]
  6. XITAB [Concomitant]

REACTIONS (3)
  - INJECTION SITE BRUISING [None]
  - INJECTION SITE IRRITATION [None]
  - WEIGHT DECREASED [None]
